FAERS Safety Report 8799508 (Version 1)
Quarter: 2012Q4

REPORT INFORMATION
  Report Type: Spontaneous
  Country: GB (occurrence: None)
  Receive Date: 20120914
  Receipt Date: 20120914
  Transmission Date: 20130627
  Serious: Yes (Disabling)
  Sender: FDA-Public Use
  Company Number: GER/UKI/12/0025797

PATIENT
  Sex: Female
  Weight: 57 kg

DRUGS (5)
  1. ATORVASTATIN [Suspect]
     Dates: start: 20120710
  2. HYOSCINE BUTYLBROMIDE [Concomitant]
  3. LANSOPRAZOLE [Concomitant]
  4. MACROGOL [Concomitant]
  5. MINTEC (MENTHA X PIPERITA OIL) [Concomitant]

REACTIONS (2)
  - Myalgia [None]
  - Hypokinesia [None]
